FAERS Safety Report 7426137-0 (Version None)
Quarter: 2011Q2

REPORT INFORMATION
  Report Type: 
  Country: None (occurrence: None)
  Receive Date: 20110420
  Receipt Date: 20110411
  Transmission Date: 20111010
  Serious: Yes (Other)
  Sender: FDA-Public Use
  Company Number: PHHY2011JP30443

PATIENT
  Age: 76 Year
  Sex: Male

DRUGS (2)
  1. NILOTINIB [Suspect]
     Dosage: 400 MG PER DAY
     Route: 048
     Dates: start: 20090501
  2. NILOTINIB [Suspect]
     Dosage: 600 MG PER DAY
     Route: 048
     Dates: start: 20100201

REACTIONS (7)
  - WEIGHT INCREASED [None]
  - FATIGUE [None]
  - THYROIDITIS CHRONIC [None]
  - HYPOTHYROIDISM [None]
  - CONSTIPATION [None]
  - OEDEMA [None]
  - GAIT DISTURBANCE [None]
